FAERS Safety Report 5844795-9 (Version None)
Quarter: 2008Q3

REPORT INFORMATION
  Report Type: 
  Country: None (occurrence: None)
  Receive Date: 20080812
  Receipt Date: 20080731
  Transmission Date: 20090109
  Serious: Yes (Hospitalization)
  Sender: FDA-Public Use
  Company Number: 2008JP002404

PATIENT
  Age: 87 Year
  Sex: Male
  Weight: 150.8 kg

DRUGS (4)
  1. FUNGUARD (MICAFUNGIN) INJECTION [Suspect]
     Indication: FUNGAL INFECTION
     Dosage: 300 MG, UID/QD, IV DRIP
     Route: 041
     Dates: start: 20080509, end: 20080513
  2. ITRIZOLE (ITRACONAZOLE) INJECTION [Suspect]
     Indication: FUNGAL INFECTION
     Dosage: 200 MG, UID/QD, IV DRIP
     Route: 041
     Dates: start: 20080428, end: 20080508
  3. ROCEPHIN [Suspect]
     Dosage: IV DRIP
     Route: 041
     Dates: start: 20080501
  4. FUNGIZONE (AMPHOTERICIN B) FOR [Suspect]
     Indication: FUNGAL INFECTION
     Dosage: 300 MG, /D
     Dates: start: 20080509, end: 20080513

REACTIONS (1)
  - CARDIAC FAILURE [None]
